FAERS Safety Report 7381480-9 (Version None)
Quarter: 2011Q1

REPORT INFORMATION
  Report Type: 
  Country: None (occurrence: None)
  Receive Date: 20110329
  Receipt Date: 20110324
  Transmission Date: 20110831
  Serious: Yes (Life-Threatening, Hospitalization, Other)
  Sender: FDA-Public Use
  Company Number: ES-GILEAD-E2B_00001156

PATIENT
  Age: 40 Year
  Sex: Female

DRUGS (9)
  1. EPIVIR [Concomitant]
  2. MYOLASTAN [Concomitant]
     Route: 048
     Dates: start: 20100728, end: 20100729
  3. RALTEGRAVIR [Concomitant]
  4. VIRAMUNE [Suspect]
     Indication: HIV INFECTION
     Route: 048
     Dates: start: 20100601, end: 20100729
  5. ATARAX [Concomitant]
     Route: 048
     Dates: end: 20100729
  6. ABACAVIR [Concomitant]
  7. TRANKIMAZIN [Concomitant]
     Route: 048
     Dates: end: 20100729
  8. TRUVADA [Suspect]
     Indication: HIV INFECTION
     Route: 048
     Dates: start: 20090201, end: 20100729
  9. STILNOX [Concomitant]
     Route: 048
     Dates: end: 20100729

REACTIONS (2)
  - LIVER TRANSPLANT [None]
  - HEPATITIS FULMINANT [None]
